FAERS Safety Report 7893955-4 (Version None)
Quarter: 2011Q4

REPORT INFORMATION
  Report Type: 
  Country: None (occurrence: None)
  Receive Date: 20111104
  Receipt Date: 20111026
  Transmission Date: 20120403
  Serious: No
  Sender: FDA-Public Use
  Company Number: US-B.I. PHARMACEUTICALS,INC./RIDGEFIELD-2011-BP-25067BP

PATIENT
  Age: 64 Year
  Sex: Female

DRUGS (6)
  1. DILTIAZEM HCL [Concomitant]
     Indication: HYPERTENSION
     Dosage: 180 MG
  2. MULTI-VITAMIN [Concomitant]
     Indication: VITAMIN SUPPLEMENTATION
  3. AVAPRO [Concomitant]
     Indication: HYPERTENSION
     Dosage: 300 MG
  4. PRADAXA [Suspect]
     Indication: ATRIAL FIBRILLATION
     Dosage: 300 MG
     Route: 048
     Dates: start: 20110825
  5. ASCORBIC ACID [Concomitant]
     Indication: VITAMIN SUPPLEMENTATION
  6. VITAMIN D [Concomitant]
     Indication: VITAMIN SUPPLEMENTATION

REACTIONS (5)
  - DYSPEPSIA [None]
  - ABDOMINAL DISTENSION [None]
  - ABDOMINAL PAIN [None]
  - VAGINAL HAEMORRHAGE [None]
  - UTERINE ENLARGEMENT [None]
